FAERS Safety Report 8418748-0 (Version None)
Quarter: 2012Q2

REPORT INFORMATION
  Report Type: 
  Country: None (occurrence: None)
  Receive Date: 20120607
  Receipt Date: 20120406
  Transmission Date: 20120825
  Serious: Yes (Other)
  Sender: FDA-Public Use
  Company Number: US-ABBOTT-12P-163-0922807-00

PATIENT
  Age: 50 Year
  Sex: Female

DRUGS (2)
  1. CELEXA [Interacting]
     Indication: DEPRESSION
  2. SYNTHROID [Suspect]
     Indication: HYPOTHYROIDISM

REACTIONS (6)
  - DELUSIONAL PERCEPTION [None]
  - HEAD INJURY [None]
  - ANGER [None]
  - DRUG INTERACTION [None]
  - SYNCOPE [None]
  - GRAND MAL CONVULSION [None]
